FAERS Safety Report 18630116 (Version 4)
Quarter: 2022Q4

REPORT INFORMATION
  Report Type: Spontaneous
  Country: US (occurrence: US)
  Receive Date: 20201217
  Receipt Date: 20221111
  Transmission Date: 20230113
  Serious: No
  Sender: FDA-Public Use
  Company Number: US-PFIZER INC-2020497274

PATIENT
  Age: 58 Year
  Sex: Male

DRUGS (3)
  1. INLYTA [Suspect]
     Active Substance: AXITINIB
     Dosage: 5 MG
     Dates: start: 20201007, end: 2020
  2. INLYTA [Suspect]
     Active Substance: AXITINIB
     Dosage: 3 MG
     Dates: start: 2020
  3. INLYTA [Suspect]
     Active Substance: AXITINIB
     Dosage: 1 MG
     Dates: start: 2020, end: 20210819

REACTIONS (6)
  - Bone pain [Recovered/Resolved]
  - Myalgia [Recovered/Resolved]
  - Headache [Unknown]
  - Hypertension [Unknown]
  - Neoplasm progression [Unknown]
  - Fatigue [Unknown]

NARRATIVE: CASE EVENT DATE: 20201009
